FAERS Safety Report 25673372 (Version 2)
Quarter: 2025Q3

REPORT INFORMATION
  Report Type: Spontaneous
  Country: JP (occurrence: JP)
  Receive Date: 20250813
  Receipt Date: 20250929
  Transmission Date: 20251021
  Serious: Yes (Other)
  Sender: ASTELLAS
  Company Number: JP-ASTELLAS-2025-AER-043065

PATIENT
  Age: 80 Year
  Sex: Male

DRUGS (6)
  1. PADCEV [Suspect]
     Active Substance: ENFORTUMAB VEDOTIN-EJFV
     Indication: Ureteric cancer metastatic
     Route: 065
     Dates: start: 2025, end: 2025
  2. CARBAZOCHROME [Concomitant]
     Active Substance: CARBAZOCHROME
     Indication: Product used for unknown indication
     Route: 048
  3. GEMCITABINE [Concomitant]
     Active Substance: GEMCITABINE
     Indication: Neoadjuvant therapy
     Route: 065
     Dates: start: 202502, end: 2025
  4. CISPLATIN [Concomitant]
     Active Substance: CISPLATIN
     Indication: Neoadjuvant therapy
     Route: 065
     Dates: start: 202502, end: 2025
  5. PEMBROLIZUMAB [Concomitant]
     Active Substance: PEMBROLIZUMAB
     Indication: Ureteric cancer metastatic
     Route: 065
     Dates: start: 2025, end: 2025
  6. OXYCONTIN [Concomitant]
     Active Substance: OXYCODONE HYDROCHLORIDE
     Indication: Palliative care
     Route: 065

REACTIONS (1)
  - Altered state of consciousness [Unknown]

NARRATIVE: CASE EVENT DATE: 20250101
